FAERS Safety Report 9228149 (Version 2)
Quarter: 2013Q2

REPORT INFORMATION
  Report Type: Report from Study
  Country: GB (occurrence: GB)
  Receive Date: 20130412
  Receipt Date: 20130520
  Transmission Date: 20140414
  Serious: Yes (Death, Other)
  Sender: FDA-Public Use
  Company Number: GB-ROCHE-1209969

PATIENT
  Sex: 0

DRUGS (2)
  1. ALTEPLASE [Suspect]
     Indication: PERIPHERAL ISCHAEMIA
     Dosage: THROMBUS LACED WITH 2-3 MG, THEN 0.5 MG PER HOUR INFUSED THROUGH CATHETER
     Route: 013
  2. HEPARIN [Suspect]
     Indication: PERIPHERAL ISCHAEMIA
     Dosage: 500 UNITS PER HOUR
     Route: 050

REACTIONS (2)
  - Disseminated intravascular coagulation [Fatal]
  - Drug ineffective [Unknown]
